FAERS Safety Report 23802365 (Version 5)
Quarter: 2025Q2

REPORT INFORMATION
  Report Type: Report from Study
  Country: AU (occurrence: AU)
  Receive Date: 20240501
  Receipt Date: 20250609
  Transmission Date: 20250717
  Serious: Yes (Hospitalization, Other)
  Sender: TAKEDA
  Company Number: AU-TAKEDA-2024TUS020678

PATIENT
  Sex: Male

DRUGS (4)
  1. VEDOLIZUMAB [Suspect]
     Active Substance: VEDOLIZUMAB
     Indication: Immune-mediated enterocolitis
  2. MESALAMINE [Suspect]
     Active Substance: MESALAMINE
     Indication: Immune-mediated enterocolitis
  3. NIVOLUMAB [Suspect]
     Active Substance: NIVOLUMAB
     Indication: Immune-mediated enterocolitis
  4. INFLIXIMAB [Suspect]
     Active Substance: INFLIXIMAB
     Indication: Immune-mediated enterocolitis

REACTIONS (5)
  - Chordoma [Unknown]
  - Immune-mediated enterocolitis [Unknown]
  - Product quality issue [Unknown]
  - Off label use [Unknown]
  - Drug ineffective [Unknown]
